FAERS Safety Report 5480276-2 (Version None)
Quarter: 2007Q4

REPORT INFORMATION
  Report Type: 
  Country: None (occurrence: None)
  Receive Date: 20071009
  Receipt Date: 20071004
  Transmission Date: 20080405
  Serious: Yes (Hospitalization)
  Sender: FDA-Public Use
  Company Number: FI-AVENTIS-200719167GDDC

PATIENT
  Age: 54 Year
  Sex: Male

DRUGS (12)
  1. FLAGYL [Suspect]
     Indication: DIVERTICULITIS
     Dosage: DOSE: UNK
     Route: 048
     Dates: start: 20070831, end: 20070905
  2. FLAGYL [Suspect]
     Dosage: DOSE: UNK
     Dates: start: 20061009
  3. FLAGYL [Suspect]
     Dosage: DOSE: UNK
     Dates: start: 20070218
  4. DOSYKLIN                           /00055701/ [Concomitant]
     Indication: DIVERTICULITIS
     Route: 048
     Dates: start: 20070831, end: 20070909
  5. CORTISONE ACETATE TAB [Concomitant]
     Dosage: DOSE: UNK
  6. BETAFERON                          /00596803/ [Concomitant]
     Indication: MULTIPLE SCLEROSIS
     Route: 058
     Dates: start: 20040101
  7. ZANIDIP [Concomitant]
     Indication: HYPERTENSION
     Route: 048
  8. BISOPROLOL RATIOPHARM              /00802602/ [Concomitant]
     Indication: HYPERTENSION
     Route: 048
  9. CARDACE                            /00885601/ [Concomitant]
     Indication: HYPERTENSION
     Route: 048
  10. PRIMASPAN [Concomitant]
     Route: 048
  11. HYDREX                             /00022001/ [Concomitant]
     Indication: HYPERTENSION
     Route: 048
  12. AVANDAMET [Concomitant]
     Dosage: DOSE: 8/2000
     Route: 048

REACTIONS (1)
  - MULTIPLE SCLEROSIS [None]
